FAERS Safety Report 5335465-4 (Version None)
Quarter: 2007Q2

REPORT INFORMATION
  Report Type: 
  Country: None (occurrence: None)
  Receive Date: 20070521
  Receipt Date: 20070502
  Transmission Date: 20071010
  Serious: Yes (Death)
  Sender: FDA-Public Use
  Company Number: DAV-AE-ACY-07-003

PATIENT
  Age: 26 Week
  Sex: Male

DRUGS (1)
  1. ACYCLOVIR [Suspect]
     Indication: HERPES SIMPLEX
     Dosage: 60 MG/KG PER DAY

REACTIONS (10)
  - DEATH NEONATAL [None]
  - HYPOTENSION [None]
  - LUNG CONSOLIDATION [None]
  - NEONATAL RESPIRATORY DISTRESS SYNDROME [None]
  - PLEURAL EFFUSION [None]
  - PNEUMOTHORAX [None]
  - PYREXIA [None]
  - RESPIRATORY FAILURE [None]
  - THROMBOCYTOPENIA [None]
  - VIRUS CULTURE POSITIVE [None]
